FAERS Safety Report 10952917 (Version 3)
Quarter: 2015Q2

REPORT INFORMATION
  Report Type: Spontaneous
  Country: US (occurrence: US)
  Receive Date: 20150325
  Receipt Date: 20150625
  Transmission Date: 20150821
  Serious: No
  Sender: FDA-Public Use
  Company Number: US-MYLANLABS-2014M1013387

PATIENT
  Age: 51 Year
  Sex: Female
  Weight: 52.15 kg

DRUGS (3)
  1. FENOFIBRATE. [Concomitant]
     Active Substance: FENOFIBRATE
     Indication: BLOOD CHOLESTEROL
     Dosage: UNK
     Dates: start: 201409
  2. ATORVASTATIN CALCIUM TABLETS [Suspect]
     Active Substance: ATORVASTATIN CALCIUM
     Indication: BLOOD CHOLESTEROL INCREASED
     Dosage: 40 MG, HS
     Route: 048
     Dates: start: 2013, end: 201402
  3. VITAMIN D                          /00107901/ [Concomitant]
     Active Substance: ERGOCALCIFEROL
     Dosage: 2000 IU, QD

REACTIONS (4)
  - Myalgia [Recovered/Resolved]
  - Pain in extremity [Recovered/Resolved]
  - Muscle enzyme increased [Recovered/Resolved]
  - Gait disturbance [Recovered/Resolved]

NARRATIVE: CASE EVENT DATE: 201410
